FAERS Safety Report 9435757 (Version 1)
Quarter: 2013Q3

REPORT INFORMATION
  Report Type: Spontaneous
  Country: US (occurrence: US)
  Receive Date: 20130801
  Receipt Date: 20130801
  Transmission Date: 20140515
  Serious: Yes (Other)
  Sender: FDA-Public Use
  Company Number: US-TEVA-422563USA

PATIENT
  Age: 70 Year
  Sex: Female

DRUGS (1)
  1. COPAXONE [Suspect]
     Indication: RELAPSING-REMITTING MULTIPLE SCLEROSIS

REACTIONS (5)
  - Multiple sclerosis relapse [Unknown]
  - Pruritus generalised [Not Recovered/Not Resolved]
  - Skin discolouration [Unknown]
  - Lipoatrophy [Unknown]
  - Urticaria [Unknown]
